FAERS Safety Report 10330012 (Version 1)
Quarter: 2014Q3

REPORT INFORMATION
  Report Type: Spontaneous
  Country: US (occurrence: US)
  Receive Date: 20140721
  Receipt Date: 20140721
  Transmission Date: 20150326
  Serious: No
  Sender: FDA-Public Use
  Company Number: US-009507513-1407USA007177

PATIENT
  Age: 75 Year
  Sex: Female

DRUGS (1)
  1. PROVENTIL [Suspect]
     Active Substance: ALBUTEROL
     Dosage: 90 MCG ^AS NEEDED^
     Route: 055
     Dates: start: 19940714

REACTIONS (4)
  - Choking [Recovered/Resolved]
  - Dysphagia [Unknown]
  - Product quality issue [Unknown]
  - Wrong technique in drug usage process [Unknown]

NARRATIVE: CASE EVENT DATE: 20140614
